FAERS Safety Report 5085995-8 (Version None)
Quarter: 2006Q3

REPORT INFORMATION
  Report Type: 
  Country: None (occurrence: None)
  Receive Date: 20060817
  Receipt Date: 20060809
  Transmission Date: 20061208
  Serious: Yes (Death, Hospitalization, Other)
  Sender: FDA-Public Use
  Company Number: 2005-11-0538

PATIENT
  Age: 70 Year
  Sex: Male

DRUGS (8)
  1. PEG-INTRON [Suspect]
     Indication: HEPATITIS C
     Dosage: 120-100* UG WK SUBCUTANEOUS
     Route: 058
     Dates: start: 20050720, end: 20051028
  2. PEG-INTRON [Suspect]
     Indication: HEPATITIS C
     Dosage: 120-100* UG WK SUBCUTANEOUS
     Route: 058
     Dates: start: 20050720, end: 20060303
  3. PEG-INTRON [Suspect]
     Indication: HEPATITIS C
     Dosage: 120-100* UG WK SUBCUTANEOUS
     Route: 058
     Dates: end: 20060303
  4. REBETOL [Suspect]
     Indication: HEPATITIS C
     Dosage: 1200-600*MG ORAL
     Route: 048
     Dates: start: 20050720, end: 20051028
  5. REBETOL [Suspect]
     Indication: HEPATITIS C
     Dosage: 1200-600*MG ORAL
     Route: 048
     Dates: start: 20050720, end: 20060303
  6. REBETOL [Suspect]
     Indication: HEPATITIS C
     Dosage: 1200-600*MG ORAL
     Route: 048
     Dates: end: 20060303
  7. PROPRANOLOL [Concomitant]
  8. PANTOPRAZOL [Concomitant]

REACTIONS (9)
  - ANAEMIA HAEMOLYTIC AUTOIMMUNE [None]
  - CONDITION AGGRAVATED [None]
  - HEPATIC ENCEPHALOPATHY [None]
  - HEPATITIS C [None]
  - HYPOKALAEMIA [None]
  - LEUKOPENIA [None]
  - OEDEMA [None]
  - PYREXIA [None]
  - SUDDEN DEATH [None]
